FAERS Safety Report 25912582 (Version 1)
Quarter: 2025Q4

REPORT INFORMATION
  Report Type: Spontaneous
  Country: US (occurrence: US)
  Receive Date: 20251013
  Receipt Date: 20251013
  Transmission Date: 20260117
  Serious: No
  Sender: PIRAMAL
  Company Number: US-PCCINC-2025-PPL-000578

PATIENT

DRUGS (1)
  1. GABLOFEN [Suspect]
     Active Substance: BACLOFEN
     Indication: Product used for unknown indication
     Dosage: UNK
     Route: 037
     Dates: end: 20250422

REACTIONS (1)
  - Withdrawal syndrome [Recovered/Resolved]
